FAERS Safety Report 18109623 (Version 2)
Quarter: 2020Q3

REPORT INFORMATION
  Report Type: Spontaneous
  Country: US (occurrence: US)
  Receive Date: 20200804
  Receipt Date: 20200826
  Transmission Date: 20201103
  Serious: Yes (Hospitalization)
  Sender: FDA-Public Use
  Company Number: US-COLLEGIUM PHARMACEUTICAL, INC.-2020CGM00122

PATIENT
  Sex: Female
  Weight: 72.56 kg

DRUGS (11)
  1. LORAZEPAM. [Concomitant]
     Active Substance: LORAZEPAM
     Dosage: 0.5 MG, 3X/DAY PRN ANXIETY
     Route: 048
  2. REGLAN [Concomitant]
     Active Substance: METOCLOPRAMIDE HYDROCHLORIDE
     Dosage: 5 MG, 4X/DAY
     Route: 048
  3. FOLIC ACID. [Concomitant]
     Active Substance: FOLIC ACID
     Dosage: 1 MG, 1X/DAY
     Route: 048
  4. TYLENOL [Concomitant]
     Active Substance: ACETAMINOPHEN
     Dosage: 650 MG, 6X/DAY AS NEEDED FOR HEADACHE
     Route: 048
  5. PROTONIX [Concomitant]
     Active Substance: PANTOPRAZOLE SODIUM
     Dosage: 40 MG, 2X/DAY(AC BK DIN)
  6. XTAMPZA ER [Suspect]
     Active Substance: OXYCODONE
     Indication: NERVE INJURY
  7. EFFEXOR [Concomitant]
     Active Substance: VENLAFAXINE HYDROCHLORIDE
  8. XTAMPZA ER [Suspect]
     Active Substance: OXYCODONE
     Indication: BACK PAIN
     Dosage: 2 PILLS, 2X/DAY
     Route: 048
     Dates: start: 2018, end: 202005
  9. CYANOCOBALAMIN. [Concomitant]
     Active Substance: CYANOCOBALAMIN
     Dosage: 1000 ?G, 1X/MONTH (Q 30 DAYS)
     Route: 030
  10. PERCOCET [Concomitant]
     Active Substance: ACETAMINOPHEN\OXYCODONE HYDROCHLORIDE
  11. GABAPENTIN. [Concomitant]
     Active Substance: GABAPENTIN
     Dosage: 1200 MG, 3X/DAY
     Route: 048

REACTIONS (11)
  - Anxiety [Unknown]
  - Movement disorder [Not Recovered/Not Resolved]
  - Anaemia [Unknown]
  - Agitation [Unknown]
  - Circulatory collapse [Recovered/Resolved]
  - Arthritis [Unknown]
  - Upper gastrointestinal haemorrhage [Unknown]
  - Impaired gastric emptying [Unknown]
  - Restlessness [Unknown]
  - Ulcer haemorrhage [Recovering/Resolving]
  - Musculoskeletal stiffness [Not Recovered/Not Resolved]

NARRATIVE: CASE EVENT DATE: 2019
